FAERS Safety Report 15061442 (Version 1)
Quarter: 2018Q2

REPORT INFORMATION
  Report Type: Spontaneous
  Country: US (occurrence: US)
  Receive Date: 20180625
  Receipt Date: 20180625
  Transmission Date: 20180711
  Serious: No
  Sender: FDA-Public Use
  Company Number: US-ROCHE-1996788

PATIENT
  Sex: Male

DRUGS (1)
  1. XELODA [Suspect]
     Active Substance: CAPECITABINE
     Indication: MALIGNANT NEOPLASM OF AMPULLA OF VATER
     Route: 048
     Dates: start: 20170613, end: 20170901

REACTIONS (1)
  - Drug ineffective [Unknown]
